FAERS Safety Report 5077831-0 (Version None)
Quarter: 2006Q3

REPORT INFORMATION
  Report Type: 
  Country: None (occurrence: None)
  Receive Date: 20060807
  Receipt Date: 20060721
  Transmission Date: 20061208
  Serious: Yes (Death, Hospitalization)
  Sender: FDA-Public Use
  Company Number: 060

PATIENT
  Sex: Female
  Weight: 136.0791 kg

DRUGS (10)
  1. FAZACLO ODT [Suspect]
     Indication: SCHIZOAFFECTIVE DISORDER
     Dosage: 700 MG PO DAILY
     Route: 048
     Dates: start: 20060306, end: 20060523
  2. M.V.I. [Concomitant]
  3. DDAVP [Concomitant]
  4. COGENTIN [Concomitant]
  5. TOPAMAX [Concomitant]
  6. WELLBUTRIN XL [Concomitant]
  7. TRAZODONE HCL [Concomitant]
  8. DEPAKOTE [Concomitant]
  9. LAMICTAL [Concomitant]
  10. LOXITANE [Concomitant]

REACTIONS (2)
  - CARDIAC ARREST [None]
  - DEHYDRATION [None]
